FAERS Safety Report 10184783 (Version 2)
Quarter: 2014Q2

REPORT INFORMATION
  Report Type: Report from Study
  Country: US (occurrence: US)
  Receive Date: 20140521
  Receipt Date: 20140616
  Transmission Date: 20141212
  Serious: Yes (Hospitalization)
  Sender: FDA-Public Use
  Company Number: PHEH2014US010117

PATIENT
  Sex: Male

DRUGS (1)
  1. DESFERAL [Suspect]
     Dosage: UKN

REACTIONS (2)
  - Infection [Unknown]
  - Iron overload [Unknown]
